FAERS Safety Report 19164539 (Version 2)
Quarter: 2021Q2

REPORT INFORMATION
  Report Type: Other
  Country: US (occurrence: US)
  Receive Date: 20210421
  Receipt Date: 20210503
  Transmission Date: 20210717
  Serious: Yes (Hospitalization)
  Sender: FDA-Public Use
  Company Number: US-ROCHE-2814571

PATIENT
  Age: 65 Year
  Sex: Female

DRUGS (1)
  1. OCREVUS [Suspect]
     Active Substance: OCRELIZUMAB
     Indication: PRIMARY PROGRESSIVE MULTIPLE SCLEROSIS
     Dosage: (PRESCRIBED AS 300 MG ON DAY 1 AND DA 15 AND 600 MG ONCE IN 6 MONTHS)?DOT:19/MAR/2018, 05/SEP/2018,
     Route: 042
     Dates: start: 20180305

REACTIONS (4)
  - Pneumonia [Not Recovered/Not Resolved]
  - Sepsis [Not Recovered/Not Resolved]
  - Pseudomonas infection [Not Recovered/Not Resolved]
  - Nocardiosis [Not Recovered/Not Resolved]

NARRATIVE: CASE EVENT DATE: 2020
